FAERS Safety Report 7719316-6 (Version None)
Quarter: 2011Q3

REPORT INFORMATION
  Report Type: 
  Country: None (occurrence: None)
  Receive Date: 20110830
  Receipt Date: 20110822
  Transmission Date: 20111222
  Serious: Yes (Hospitalization)
  Sender: FDA-Public Use
  Company Number: AU-BAYER-2011-071229

PATIENT
  Age: 38 Year
  Sex: Female

DRUGS (3)
  1. ANTIDEPRESSANTS [Concomitant]
     Indication: ANTIDEPRESSANT THERAPY
     Dosage: DAILY DOSE 30 MG
     Route: 048
  2. MIRENA [Suspect]
     Indication: CONTRACEPTION
     Dosage: 20 MCG/24HR, CONT
     Route: 015
     Dates: start: 20110801, end: 20110801
  3. FLUOXETINE [Concomitant]
     Dosage: 30 MG, UNK

REACTIONS (4)
  - ABDOMINAL PAIN [None]
  - NERVOUS SYSTEM DISORDER [None]
  - CIRCULATORY COLLAPSE [None]
  - DYSTONIA [None]
